FAERS Safety Report 18871675 (Version 1)
Quarter: 2021Q1

REPORT INFORMATION
  Report Type: Spontaneous
  Country: ES (occurrence: ES)
  Receive Date: 20210210
  Receipt Date: 20210210
  Transmission Date: 20210420
  Serious: No
  Sender: FDA-Public Use
  Company Number: None

PATIENT
  Age: 37 Year
  Sex: Female
  Weight: 75 kg

DRUGS (4)
  1. NEXTHALER [Concomitant]
  2. FOSTAIR [Concomitant]
     Active Substance: BECLOMETHASONE\FORMOTEROL
  3. SINGULAIR [Suspect]
     Active Substance: MONTELUKAST SODIUM
     Indication: ASTHMA
     Route: 048
     Dates: start: 20210116, end: 20210209
  4. VITAMIN B12 [Concomitant]
     Active Substance: CYANOCOBALAMIN

REACTIONS (9)
  - Depression [None]
  - Gait disturbance [None]
  - Muscle spasms [None]
  - Skin burning sensation [None]
  - Pain in extremity [None]
  - Abnormal dreams [None]
  - Middle insomnia [None]
  - Pruritus [None]
  - Arthralgia [None]

NARRATIVE: CASE EVENT DATE: 20210206
